FAERS Safety Report 4615248-0 (Version None)
Quarter: 2005Q1

REPORT INFORMATION
  Report Type: 
  Country: None (occurrence: None)
  Receive Date: 20050317
  Receipt Date: 20050311
  Transmission Date: 20050727
  Serious: Yes (Other)
  Sender: FDA-Public Use
  Company Number: FRWYE497011MAR05

PATIENT
  Age: 67 Year
  Sex: Female

DRUGS (1)
  1. EFFEXOR XR [Suspect]
     Indication: DEPRESSION
     Dosage: 37.5 MG 2X PER 1 DAY, ORAL
     Route: 048
     Dates: start: 20040801, end: 20041001

REACTIONS (2)
  - RETINAL DETACHMENT [None]
  - VITREOUS FLOATERS [None]
